FAERS Safety Report 7629477-5 (Version None)
Quarter: 2011Q3

REPORT INFORMATION
  Report Type: 
  Country: None (occurrence: None)
  Receive Date: 20110722
  Receipt Date: 20110710
  Transmission Date: 20111222
  Serious: Yes (Hospitalization, Other)
  Sender: FDA-Public Use
  Company Number: IL-SANOFI-AVENTIS-2011SA044596

PATIENT
  Age: 38 Year
  Sex: Female

DRUGS (3)
  1. ARAVA [Suspect]
     Indication: RHEUMATOID ARTHRITIS
     Route: 065
     Dates: start: 20100801
  2. METICORTEN [Concomitant]
     Indication: RHEUMATOID ARTHRITIS
     Route: 065
     Dates: start: 20100801
  3. CORTICOSTEROID NOS [Concomitant]

REACTIONS (4)
  - ATAXIA [None]
  - GAIT DISTURBANCE [None]
  - CONDITION AGGRAVATED [None]
  - SENSATION OF HEAVINESS [None]
